FAERS Safety Report 8199334-7 (Version None)
Quarter: 2012Q1

REPORT INFORMATION
  Report Type: 
  Country: None (occurrence: None)
  Receive Date: 20120309
  Receipt Date: 20120306
  Transmission Date: 20120608
  Serious: Yes (Life-Threatening, Hospitalization)
  Sender: FDA-Public Use
  Company Number: PHHY2012GB019327

PATIENT
  Age: 85 Year
  Sex: Female

DRUGS (18)
  1. CALCIUM CARBONATE [Suspect]
     Dosage: 1 DF, BID
  2. CARBOCISTEINE [Concomitant]
     Dosage: 375 MG, TID
  3. TIOPRONIN [Concomitant]
  4. WARFARIN SODIUM [Concomitant]
     Route: 048
  5. BENDROFLUMETHIAZIDE [Suspect]
     Dosage: 2.5 MG, QD
     Route: 048
  6. METFORMIN HYDROCHLORIDE [Concomitant]
     Dosage: 500 MG, BID
  7. GLICLAZIDE [Concomitant]
     Dosage: 80 MG, QD
     Route: 048
  8. FUROSEMIDE [Suspect]
     Dosage: 40 MG, QD
     Route: 048
  9. MIRTAZAPINE [Concomitant]
     Dosage: 15 MG, QD
     Route: 048
  10. PREDNISOLONE [Suspect]
     Dosage: 37.5 MG, QD
     Route: 048
  11. ACETAMINOPHEN AND CODEINE PHOSPHATE [Concomitant]
     Dosage: 2 DF, QID
     Route: 048
  12. FERSAMAL [Concomitant]
     Dosage: 210 MG, TID
  13. ESOMEPRAZOLE SODIUM [Concomitant]
     Dosage: 40 MG, UNK
     Route: 048
  14. FLUTICASONE PROPIONATE/SALMETEROL [Concomitant]
     Dosage: 2 DF, BID
  15. BUTIRAN [Concomitant]
     Dosage: 1 DF, QW
     Route: 062
  16. DIGOXIN [Concomitant]
     Dosage: 125 UG, QD
     Route: 048
  17. MUCODYNE [Concomitant]
     Dosage: 375 MG, TID
     Route: 048
  18. SALAMOL (SALBUTAMOL SULFATE) [Concomitant]
     Dosage: 2.5 MG, QID

REACTIONS (3)
  - DYSPNOEA [None]
  - METABOLIC ALKALOSIS [None]
  - BLOOD CALCIUM INCREASED [None]
